FAERS Safety Report 7482727-0 (Version None)
Quarter: 2011Q2

REPORT INFORMATION
  Report Type: 
  Country: None (occurrence: None)
  Receive Date: 20110516
  Receipt Date: 20110505
  Transmission Date: 20111010
  Serious: Yes (Hospitalization)
  Sender: FDA-Public Use
  Company Number: US-ASTRAZENECA-2011SE26410

PATIENT
  Age: 80 Year
  Sex: Male

DRUGS (1)
  1. VIMOVO [Suspect]
     Indication: OSTEOARTHRITIS
     Route: 048
     Dates: start: 20110401

REACTIONS (1)
  - NON-CARDIAC CHEST PAIN [None]
